FAERS Safety Report 24787195 (Version 1)
Quarter: 2024Q4

REPORT INFORMATION
  Report Type: Spontaneous
  Country: GB (occurrence: GB)
  Receive Date: 20241230
  Receipt Date: 20241230
  Transmission Date: 20250115
  Serious: Yes (Other)
  Sender: DR REDDYS
  Company Number: None

PATIENT
  Age: 69 Year
  Sex: Female
  Weight: 72 kg

DRUGS (4)
  1. FULVESTRANT [Suspect]
     Active Substance: FULVESTRANT
     Indication: Product used for unknown indication
     Dosage: 500 MG INITIALLY EVERY TWO WEEKS THEN MONTHLY. REDUCED TO 250 MG MONTHLY NOW
     Dates: start: 2024
  2. FULVESTRANT [Suspect]
     Active Substance: FULVESTRANT
     Dosage: 500 MG INITIALLY EVERY TWO WEEKS THEN MONTHLY. REDUCED TO 250 MG MONTHLY NOW
  3. RIBOCICLIB [Concomitant]
     Active Substance: RIBOCICLIB
     Indication: Metastases to bone
     Dates: start: 202404, end: 20240508
  4. CHOLECALCIFEROL [Concomitant]
     Active Substance: CHOLECALCIFEROL
     Indication: Vitamin D deficiency

REACTIONS (1)
  - Pain [Recovering/Resolving]

NARRATIVE: CASE EVENT DATE: 20240515
